FAERS Safety Report 4894941-9 (Version None)
Quarter: 2006Q1

REPORT INFORMATION
  Report Type: 
  Country: None (occurrence: None)
  Receive Date: 20060130
  Receipt Date: 20050420
  Transmission Date: 20060701
  Serious: No
  Sender: FDA-Public Use
  Company Number: US-BRISTOL-MYERS SQUIBB COMPANY-12940680

PATIENT
  Age: 53 Year
  Sex: Male
  Weight: 86 kg

DRUGS (5)
  1. GLUCOPHAGE [Suspect]
     Indication: DIABETES MELLITUS NON-INSULIN-DEPENDENT
     Route: 048
     Dates: start: 20050419, end: 20050420
  2. METRONIDAZOLE HCL [Concomitant]
  3. GEMFIBROZIL [Concomitant]
  4. FEXOFENADINE HCL [Concomitant]
  5. OMEPRAZOLE [Concomitant]

REACTIONS (1)
  - DIARRHOEA [None]
